FAERS Safety Report 4269981-3 (Version None)
Quarter: 2004Q1

REPORT INFORMATION
  Report Type: 
  Country: None (occurrence: None)
  Receive Date: 20040114
  Receipt Date: 20040105
  Transmission Date: 20041129
  Serious: Yes (Hospitalization)
  Sender: FDA-Public Use
  Company Number: FR-BRISTOL-MYERS SQUIBB COMPANY-12471306

PATIENT
  Age: 75 Year
  Sex: Male

DRUGS (10)
  1. GLUCOPHAGE [Suspect]
     Indication: DIABETES MELLITUS
     Route: 048
     Dates: start: 20031122, end: 20031216
  2. ZYLORIC [Suspect]
     Route: 048
     Dates: start: 20031122, end: 20031216
  3. KARDEGIC [Concomitant]
  4. ZESTRIL [Concomitant]
  5. DIAMICRON [Concomitant]
  6. SOPROL [Concomitant]
  7. BEFIZAL [Concomitant]
  8. ARESTAL [Concomitant]
  9. TRIMEPRAZINE TAB [Concomitant]
  10. NASONEX [Concomitant]

REACTIONS (3)
  - CYTOLYTIC HEPATITIS [None]
  - DEHYDRATION [None]
  - RENAL FAILURE [None]
